FAERS Safety Report 5625520-3 (Version None)
Quarter: 2008Q1

REPORT INFORMATION
  Report Type: 
  Country: None (occurrence: None)
  Receive Date: 20080211
  Receipt Date: 20080211
  Transmission Date: 20080703
  Serious: Yes (Other)
  Sender: FDA-Public Use
  Company Number: None

PATIENT
  Age: 80 Year
  Sex: Female

DRUGS (2)
  1. AGGRENOX [Suspect]
     Dosage: ORAL
     Route: 048
  2. NITROGLYCERIN;;;ANTIANGINALS;TRANSDERMAL SYSTEMS;;0.2 MG [Suspect]
     Dosage: TOPICAL
     Route: 061

REACTIONS (3)
  - APPLICATION SITE REACTION [None]
  - BREAST HAEMATOMA [None]
  - HAEMATOMA [None]
